FAERS Safety Report 6251688-4 (Version None)
Quarter: 2009Q2

REPORT INFORMATION
  Report Type: 
  Country: None (occurrence: None)
  Receive Date: 20090630
  Receipt Date: 20090623
  Transmission Date: 20091009
  Serious: Yes (Other)
  Sender: FDA-Public Use
  Company Number: US-AVENTIS-200913978US

PATIENT
  Sex: Male
  Weight: 97.06 kg

DRUGS (6)
  1. LANTUS [Suspect]
     Dosage: DOSE: STARTED WITH 5 UNITS AND NOW UP TO 75 UNITS A DAY
     Route: 058
     Dates: start: 19980101
  2. OPTICLIK (INSULIN INJECTION PEN) [Suspect]
  3. METFORMIN HCL [Concomitant]
     Indication: BLOOD GLUCOSE ABNORMAL
     Dates: start: 19980101
  4. METOPROLOL SUCCINATE [Concomitant]
     Indication: BLOOD PRESSURE
     Dates: start: 20010101
  5. CADUET [Concomitant]
     Indication: BLOOD PRESSURE
     Dosage: DOSE: 10/10
  6. CADUET [Concomitant]
     Dosage: DOSE: 10/10

REACTIONS (2)
  - MACULAR DEGENERATION [None]
  - VISUAL IMPAIRMENT [None]
